FAERS Safety Report 14898431 (Version 2)
Quarter: 2018Q2

REPORT INFORMATION
  Report Type: Spontaneous
  Country: US (occurrence: US)
  Receive Date: 20180515
  Receipt Date: 20180517
  Transmission Date: 20180711
  Serious: No
  Sender: FDA-Public Use
  Company Number: US-SA-2018SA099908

PATIENT
  Age: 77 Year
  Sex: Male

DRUGS (4)
  1. TOUJEO [Suspect]
     Active Substance: INSULIN GLARGINE
     Dosage: DOSE:15 UNIT(S)
     Route: 051
     Dates: start: 20180301
  2. SOLOSTAR [Suspect]
     Active Substance: DEVICE
     Dates: start: 20180301
  3. TOUJEO [Suspect]
     Active Substance: INSULIN GLARGINE
     Dosage: DOSE:19 UNIT(S)
     Route: 051
     Dates: start: 20180329
  4. SOLOSTAR [Suspect]
     Active Substance: DEVICE
     Dates: start: 201803

REACTIONS (2)
  - Injection site rash [Recovering/Resolving]
  - Blood glucose increased [Recovered/Resolved]

NARRATIVE: CASE EVENT DATE: 201803
